FAERS Safety Report 21081938 (Version 4)
Quarter: 2022Q4

REPORT INFORMATION
  Report Type: Report from Study
  Country: US (occurrence: US)
  Receive Date: 20220714
  Receipt Date: 20221011
  Transmission Date: 20230113
  Serious: Yes (Hospitalization, Other)
  Sender: FDA-Public Use
  Company Number: US-KOREA IPSEN Pharma-2022-10626

PATIENT
  Age: 62 Year
  Sex: Female

DRUGS (2)
  1. SOMATULINE DEPOT [Suspect]
     Active Substance: LANREOTIDE ACETATE
     Indication: Acromegaly
     Dosage: 120 MG EVERY 4 WEEKS/ 28 DAYS
     Route: 058
     Dates: start: 2002, end: 2014
  2. SOMATULINE DEPOT [Suspect]
     Active Substance: LANREOTIDE ACETATE
     Dosage: 90MG SQ
     Route: 058
     Dates: start: 2014

REACTIONS (5)
  - Arthropathy [Recovered/Resolved]
  - Joint injury [Recovered/Resolved]
  - Diarrhoea [Unknown]
  - Alopecia [Not Recovered/Not Resolved]
  - Blood glucose abnormal [Unknown]

NARRATIVE: CASE EVENT DATE: 20120101
